FAERS Safety Report 7382532-X (Version None)
Quarter: 2011Q1

REPORT INFORMATION
  Report Type: 
  Country: None (occurrence: None)
  Receive Date: 20110329
  Receipt Date: 20110322
  Transmission Date: 20110831
  Serious: Yes (Death, Life-Threatening, Hospitalization, Other)
  Sender: FDA-Public Use
  Company Number: JP-BRISTOL-MYERS SQUIBB COMPANY-13986914

PATIENT
  Age: 75 Year
  Sex: Female

DRUGS (8)
  1. ONCOVIN [Concomitant]
     Route: 041
     Dates: start: 20070713, end: 20070823
  2. ENDOXAN [Concomitant]
     Dosage: 500MG/D,13JUL07,IVD
     Route: 041
     Dates: start: 20070713, end: 20070823
  3. FOY [Concomitant]
     Route: 041
     Dates: start: 20070712, end: 20070723
  4. LASIX [Concomitant]
     Route: 042
     Dates: start: 20071110, end: 20071112
  5. BARACLUDE [Suspect]
     Indication: HEPATITIS B
     Route: 048
     Dates: start: 20070712, end: 20071112
  6. PREDONINE [Concomitant]
     Route: 048
     Dates: start: 20070701, end: 20071112
  7. THERARUBICIN [Concomitant]
     Dosage: ALSO AS 30MG/D,13JUL07,IVD
     Route: 041
     Dates: start: 20070713, end: 20070823
  8. GRAN [Concomitant]
     Route: 058
     Dates: start: 20070721, end: 20071110

REACTIONS (7)
  - ANGIOIMMUNOBLASTIC T-CELL LYMPHOMA [None]
  - DISSEMINATED INTRAVASCULAR COAGULATION [None]
  - PLATELET COUNT DECREASED [None]
  - CARDIAC FAILURE [None]
  - ALANINE AMINOTRANSFERASE INCREASED [None]
  - NEUTROPHIL COUNT DECREASED [None]
  - HISTIOCYTOSIS HAEMATOPHAGIC [None]
